FAERS Safety Report 10404212 (Version 1)
Quarter: 2014Q1

REPORT INFORMATION
  Report Type: Spontaneous
  Country: US (occurrence: None)
  Receive Date: 20140122
  Receipt Date: 20140122
  Transmission Date: 20141002
  Serious: No
  Sender: FDA-Public Use
  Company Number: AEGR000031

PATIENT
  Age: 44 Year
  Sex: Female
  Weight: 57.1 kg

DRUGS (12)
  1. JUXTAPID (LOMITAPIDE) CAPSULE, 5MG [Suspect]
     Indication: TYPE IIA HYPERLIPIDAEMIA
     Dosage: QD (HS)
     Route: 048
     Dates: start: 20130330, end: 2013
  2. ASPIRIN (ACETYLSALICYLIC ACID) [Concomitant]
  3. ZETIA (EZETIMIBE) [Concomitant]
  4. TRILIPIX (CHOLINE FENOFIBRATE) [Concomitant]
  5. METOPROLOL TARTRATE [Concomitant]
  6. EFFIENT (PRASUGREL HYDROCHLORIDE) [Concomitant]
  7. RANEXA (RANOLAZINE) [Concomitant]
  8. CRESTOR (ROSUVASTATIN CALCIUM) [Concomitant]
  9. FERROUS SULFATE [Concomitant]
  10. NITROSTAT (GLYCERYL TRINITRATE) [Concomitant]
  11. VITAMIN E (TOCOPHERYL ACETATE) [Concomitant]
  12. FISH OIL [Concomitant]

REACTIONS (2)
  - Diarrhoea [None]
  - Influenza like illness [None]
